FAERS Safety Report 5062995-5 (Version None)
Quarter: 2006Q3

REPORT INFORMATION
  Report Type: 
  Country: None (occurrence: None)
  Receive Date: 20060727
  Receipt Date: 20060720
  Transmission Date: 20061208
  Serious: Yes (Other)
  Sender: FDA-Public Use
  Company Number: US-BRACCO-BDI-008445

PATIENT
  Sex: Male

DRUGS (3)
  1. ISOVUE-300 [Suspect]
     Route: 037
     Dates: start: 20040628, end: 20040628
  2. ISOVUE-300 [Suspect]
     Route: 037
     Dates: start: 20040628, end: 20040628
  3. OMNISCAN [Suspect]

REACTIONS (2)
  - CONVULSION [None]
  - RHABDOMYOLYSIS [None]
